FAERS Safety Report 16234716 (Version 2)
Quarter: 2019Q2

REPORT INFORMATION
  Report Type: Spontaneous
  Country: US (occurrence: US)
  Receive Date: 20190424
  Receipt Date: 20190513
  Transmission Date: 20190711
  Serious: Yes (Hospitalization, Other)
  Sender: FDA-Public Use
  Company Number: US-GLAXOSMITHKLINE-US2019072383

PATIENT
  Sex: Male

DRUGS (1)
  1. TRELEGY ELLIPTA [Suspect]
     Active Substance: FLUTICASONE FUROATE\UMECLIDINIUM BROMIDE\VILANTEROL TRIFENATATE
     Indication: PRODUCT USED FOR UNKNOWN INDICATION
     Dosage: 1 PUFF(S), 100/62.5/25MCG
     Route: 055
     Dates: start: 2019

REACTIONS (4)
  - Hospitalisation [Unknown]
  - Product complaint [Unknown]
  - Malaise [Unknown]
  - Overdose [Unknown]

NARRATIVE: CASE EVENT DATE: 2019
